FAERS Safety Report 4603226-7 (Version None)
Quarter: 2005Q1

REPORT INFORMATION
  Report Type: 
  Country: None (occurrence: None)
  Receive Date: 20050307
  Receipt Date: 20050223
  Transmission Date: 20050727
  Serious: Yes (Other)
  Sender: FDA-Public Use
  Company Number: 2005037402

PATIENT
  Age: 55 Year
  Sex: Male

DRUGS (2)
  1. CLINDAMYCIN PHOSPHATE [Suspect]
     Indication: ILL-DEFINED DISORDER
     Dosage: INTRAVENOUS
     Route: 042
     Dates: start: 20050223, end: 20050223
  2. QUINOLONE ANTIBACTERIALS (QUINOLONE ANTIBACTERIALS) [Concomitant]

REACTIONS (2)
  - FEELING COLD [None]
  - SHOCK [None]
